FAERS Safety Report 14484911 (Version 1)
Quarter: 2018Q1

REPORT INFORMATION
  Report Type: Spontaneous
  Country: US (occurrence: US)
  Receive Date: 20180205
  Receipt Date: 20180205
  Transmission Date: 20180509
  Serious: No
  Sender: FDA-Public Use
  Company Number: US-BAYER-2018-020172

PATIENT
  Age: 90 Year
  Sex: Female
  Weight: 74 kg

DRUGS (3)
  1. CHOLESTEROL [Concomitant]
     Active Substance: CHOLESTEROL
  2. MIRALAX [Suspect]
     Active Substance: POLYETHYLENE GLYCOL 3350
     Indication: GASTROINTESTINAL DISORDER
     Dosage: 2 DF, QD
     Route: 048
     Dates: start: 201706
  3. THYROID [Concomitant]
     Active Substance: LEVOTHYROXINE\LIOTHYRONINE

REACTIONS (2)
  - Drug ineffective [Not Recovered/Not Resolved]
  - Extra dose administered [Not Recovered/Not Resolved]
